FAERS Safety Report 9932539 (Version 2)
Quarter: 2015Q1

REPORT INFORMATION
  Report Type: Spontaneous
  Country: US (occurrence: US)
  Receive Date: 20140228
  Receipt Date: 20150211
  Transmission Date: 20150721
  Serious: No
  Sender: FDA-Public Use
  Company Number: US-GLAXOSMITHKLINE-A1020068A

PATIENT

DRUGS (29)
  1. LAMICTAL [Suspect]
     Active Substance: LAMOTRIGINE
     Indication: AGORAPHOBIA
     Route: 065
  2. XANAX [Concomitant]
     Active Substance: ALPRAZOLAM
  3. SEROQUEL [Concomitant]
     Active Substance: QUETIAPINE FUMARATE
     Indication: AGORAPHOBIA
     Route: 065
  4. DEPAKOTE [Concomitant]
     Active Substance: DIVALPROEX SODIUM
     Indication: AGORAPHOBIA
     Route: 065
  5. UNSPECIFIED MEDICATIONS [Concomitant]
     Active Substance: UNSPECIFIED INGREDIENT
     Indication: AGORAPHOBIA
     Route: 065
  6. IMIPRAMINE [Concomitant]
     Active Substance: IMIPRAMINE
  7. WELLBUTRIN [Suspect]
     Active Substance: BUPROPION HYDROCHLORIDE
     Indication: AGORAPHOBIA
     Route: 065
  8. VALIUM [Concomitant]
     Active Substance: DIAZEPAM
     Indication: AGORAPHOBIA
     Route: 065
  9. KLONOPIN [Concomitant]
     Active Substance: CLONAZEPAM
     Indication: AGORAPHOBIA
     Route: 065
  10. CELEXA [Concomitant]
     Active Substance: CITALOPRAM HYDROBROMIDE
     Indication: AGORAPHOBIA
     Route: 065
  11. FOLIC ACID. [Concomitant]
     Active Substance: FOLIC ACID
  12. LISINOPRIL. [Concomitant]
     Active Substance: LISINOPRIL
  13. VITAMIN D [Concomitant]
     Active Substance: CHOLECALCIFEROL
  14. PREDNISONE. [Concomitant]
     Active Substance: PREDNISONE
  15. ZOLOFT TABLET [Concomitant]
     Indication: AGORAPHOBIA
     Route: 065
  16. PROZAC [Concomitant]
     Active Substance: FLUOXETINE HYDROCHLORIDE
     Indication: AGORAPHOBIA
     Route: 065
  17. LUVOX [Concomitant]
     Active Substance: FLUVOXAMINE MALEATE
     Indication: AGORAPHOBIA
     Route: 065
  18. PAXIL [Suspect]
     Active Substance: PAROXETINE HYDROCHLORIDE
     Indication: AGORAPHOBIA
     Route: 065
  19. PRISTIQ TABLET [Concomitant]
     Indication: AGORAPHOBIA
     Route: 048
  20. SEROQUEL XR [Concomitant]
     Active Substance: QUETIAPINE FUMARATE
  21. TOPAMAX [Concomitant]
     Active Substance: TOPIRAMATE
     Indication: AGORAPHOBIA
     Route: 065
  22. ADDERALL [Concomitant]
     Active Substance: AMPHETAMINE ASPARTATE\AMPHETAMINE SULFATE\DEXTROAMPHETAMINE SACCHARATE\DEXTROAMPHETAMINE SULFATE
  23. LEVOTHYROXINE [Concomitant]
     Active Substance: LEVOTHYROXINE
  24. LEXAPRO [Concomitant]
     Active Substance: ESCITALOPRAM OXALATE
     Indication: AGORAPHOBIA
     Route: 065
  25. TEGRETOL [Concomitant]
     Active Substance: CARBAMAZEPINE
     Indication: AGORAPHOBIA
     Route: 065
  26. ABILIFY [Concomitant]
     Active Substance: ARIPIPRAZOLE
     Indication: AGORAPHOBIA
  27. CYMBALTA [Concomitant]
     Active Substance: DULOXETINE HYDROCHLORIDE
     Indication: AGORAPHOBIA
     Route: 065
  28. ANAFRANIL [Concomitant]
     Active Substance: CLOMIPRAMINE HYDROCHLORIDE
     Indication: AGORAPHOBIA
     Route: 065
  29. LITHIUM [Concomitant]
     Active Substance: LITHIUM CARBONATE
     Indication: AGORAPHOBIA
     Route: 065

REACTIONS (1)
  - Drug ineffective [Unknown]
